FAERS Safety Report 25161817 (Version 1)
Quarter: 2025Q2

REPORT INFORMATION
  Report Type: Spontaneous
  Country: SK (occurrence: SK)
  Receive Date: 20250404
  Receipt Date: 20250404
  Transmission Date: 20250717
  Serious: Yes (Other)
  Sender: BAYER
  Company Number: SK-BAYER-2025A042097

PATIENT
  Sex: Female

DRUGS (1)
  1. MIRENA [Suspect]
     Active Substance: LEVONORGESTREL
     Indication: Intrauterine contraception
     Dosage: 20?G/DAY
     Route: 015
     Dates: start: 20250217

REACTIONS (10)
  - Polycystic ovarian syndrome [None]
  - Post procedural haemorrhage [None]
  - Heavy menstrual bleeding [None]
  - Device expulsion [Not Recovered/Not Resolved]
  - Device use issue [None]
  - Post procedural haemorrhage [None]
  - Haematuria [None]
  - Abdominal pain lower [None]
  - Hypomenorrhoea [None]
  - Device dislocation [Recovered/Resolved]

NARRATIVE: CASE EVENT DATE: 20250101
